FAERS Safety Report 20738503 (Version 1)
Quarter: 2022Q2

REPORT INFORMATION
  Report Type: Spontaneous
  Country: PL (occurrence: PL)
  Receive Date: 20220422
  Receipt Date: 20220422
  Transmission Date: 20220721
  Serious: Yes (Death, Other)
  Sender: FDA-Public Use
  Company Number: PL-MLMSERVICE-20220412-3496955-2

PATIENT
  Age: 3 Year
  Sex: Male

DRUGS (18)
  1. DEXAMETHASONE [Suspect]
     Active Substance: DEXAMETHASONE
     Indication: Precursor T-lymphoblastic lymphoma/leukaemia stage IV
     Dosage: INDUCTION, COURSE HIB
     Route: 065
  2. DEXAMETHASONE [Suspect]
     Active Substance: DEXAMETHASONE
     Indication: Disease progression
     Dosage: HR CONSOLIDATION BLOCK 1 - HC1
     Route: 065
  3. PEGASPARGASE [Suspect]
     Active Substance: PEGASPARGASE
     Indication: Precursor T-lymphoblastic lymphoma/leukaemia stage IV
     Dosage: 1000 U/M2 (HR CONSOLIDATION BLOCK 1 - HC1 AND INDUCTION, COURSE HIB)
     Route: 065
  4. PEGASPARGASE [Suspect]
     Active Substance: PEGASPARGASE
     Indication: Disease progression
  5. MITOXANTRONE [Suspect]
     Active Substance: MITOXANTRONE HYDROCHLORIDE
     Indication: Precursor T-lymphoblastic lymphoma/leukaemia stage IV
     Route: 065
  6. MITOXANTRONE [Suspect]
     Active Substance: MITOXANTRONE HYDROCHLORIDE
     Indication: Disease progression
  7. BORTEZOMIB [Suspect]
     Active Substance: BORTEZOMIB
     Indication: Precursor T-lymphoblastic lymphoma/leukaemia stage IV
     Dosage: SUBSEQUENT TREATMENT
     Route: 065
  8. BORTEZOMIB [Suspect]
     Active Substance: BORTEZOMIB
     Indication: Disease progression
  9. VINCRISTINE [Suspect]
     Active Substance: VINCRISTINE
     Indication: Precursor T-lymphoblastic lymphoma/leukaemia stage IV
     Dosage: INDUCTION, COURSE HIB
     Route: 065
  10. VINCRISTINE [Suspect]
     Active Substance: VINCRISTINE
     Indication: Disease progression
     Dosage: HR CONSOLIDATION BLOCK 1 - HC1
     Route: 065
  11. CYTARABINE [Suspect]
     Active Substance: CYTARABINE
     Indication: Precursor T-lymphoblastic lymphoma/leukaemia stage IV
     Dosage: HR CONSOLIDATION BLOCK 1 ? HC1 ARA-C: 2 G/M2
     Route: 065
  12. CYTARABINE [Suspect]
     Active Substance: CYTARABINE
     Indication: Disease progression
  13. METHOTREXATE [Suspect]
     Active Substance: METHOTREXATE
     Indication: Precursor T-lymphoblastic lymphoma/leukaemia stage IV
     Dosage: METHOTREXATE 1 G/M2 (HR CONSOLIDATION BLOCK 1 - HC1)
     Route: 065
  14. METHOTREXATE [Suspect]
     Active Substance: METHOTREXATE
     Indication: Disease progression
  15. CYCLOPHOSPHAMIDE [Suspect]
     Active Substance: CYCLOPHOSPHAMIDE
     Indication: Precursor T-lymphoblastic lymphoma/leukaemia stage IV
     Dosage: HR CONSOLIDATION BLOCK 1- HC1
     Route: 065
  16. CYCLOPHOSPHAMIDE [Suspect]
     Active Substance: CYCLOPHOSPHAMIDE
     Indication: Disease progression
     Dosage: SUBSEQUENT TREATMENT
     Route: 065
  17. ETOPOSIDE [Suspect]
     Active Substance: ETOPOSIDE
     Indication: Precursor T-lymphoblastic lymphoma/leukaemia stage IV
     Dosage: SUBSEQUENT TREATMENT
     Route: 065
  18. ETOPOSIDE [Suspect]
     Active Substance: ETOPOSIDE
     Indication: Disease progression

REACTIONS (3)
  - Precursor T-lymphoblastic lymphoma/leukaemia stage IV [Fatal]
  - Disease progression [Fatal]
  - Epilepsy [Unknown]
